FAERS Safety Report 14782004 (Version 1)
Quarter: 2018Q2

REPORT INFORMATION
  Report Type: Spontaneous
  Country: GR (occurrence: GR)
  Receive Date: 20180420
  Receipt Date: 20180420
  Transmission Date: 20180711
  Serious: Yes (Other)
  Sender: FDA-Public Use
  Company Number: GR-CIPLA LTD.-2018GR15807

PATIENT

DRUGS (1)
  1. LAMOTRIGINE. [Suspect]
     Active Substance: LAMOTRIGINE
     Indication: PRODUCT USED FOR UNKNOWN INDICATION
     Dosage: 800 MG (ESTIMATED)
     Route: 065

REACTIONS (6)
  - Toxicity to various agents [Unknown]
  - Generalised tonic-clonic seizure [Recovered/Resolved]
  - Ataxia [Recovered/Resolved]
  - Hypertonia [Recovered/Resolved]
  - Overdose [Unknown]
  - Muscular weakness [Recovered/Resolved]
